FAERS Safety Report 9361167 (Version 2)
Quarter: 2013Q3

REPORT INFORMATION
  Report Type: Spontaneous
  Country: US (occurrence: US)
  Receive Date: 20130621
  Receipt Date: 20130704
  Transmission Date: 20140515
  Serious: No
  Sender: FDA-Public Use
  Company Number: US-PFIZER INC-2013183246

PATIENT
  Age: 71 Year
  Sex: Female
  Weight: 49.43 kg

DRUGS (4)
  1. TOVIAZ [Suspect]
     Indication: HYPERTONIC BLADDER
     Dosage: UNK
  2. TOVIAZ [Suspect]
     Dosage: 8 MG, 1X/DAY
     Dates: end: 201304
  3. LYRICA [Concomitant]
     Indication: NEUROPATHY PERIPHERAL
     Dosage: UNK
  4. HYDROCODONE [Concomitant]
     Dosage: UNK

REACTIONS (2)
  - Eye irritation [Unknown]
  - Dry mouth [Unknown]
